FAERS Safety Report 23608333 (Version 4)
Quarter: 2024Q2

REPORT INFORMATION
  Report Type: Report from Study
  Country: US (occurrence: US)
  Receive Date: 20240307
  Receipt Date: 20240520
  Transmission Date: 20240716
  Serious: Yes (Hospitalization)
  Sender: FDA-Public Use
  Company Number: US-ABBVIE-5649684

PATIENT
  Sex: Male

DRUGS (4)
  1. VENCLEXTA [Suspect]
     Active Substance: VENETOCLAX
     Indication: Acute myeloid leukaemia recurrent
     Dosage: FORM STRENGTH: 100 MG, FIRST ADMIN DATE 2024
     Route: 048
     Dates: start: 2024
  2. VENCLEXTA [Suspect]
     Active Substance: VENETOCLAX
     Indication: Acute myeloid leukaemia recurrent
     Dosage: FORM STRENGTH: 100 MG, ?LAST ADMIN DATE 2024
     Route: 048
     Dates: start: 20240207
  3. XOSPATA [Suspect]
     Active Substance: GILTERITINIB
     Indication: Acute myeloid leukaemia recurrent
     Dosage: STRENGTH: 40 MG?FIRST ADMIN DATE: 2024
     Route: 048
  4. XOSPATA [Suspect]
     Active Substance: GILTERITINIB
     Indication: Acute myeloid leukaemia recurrent
     Dosage: STRENGTH: 40 MG
     Route: 048
     Dates: start: 20240207

REACTIONS (6)
  - Pyrexia [Recovering/Resolving]
  - Stomatitis [Unknown]
  - Platelet count decreased [Recovering/Resolving]
  - Haemoglobin decreased [Unknown]
  - Nausea [Unknown]
  - Blast cell count decreased [Recovering/Resolving]

NARRATIVE: CASE EVENT DATE: 20240101
